FAERS Safety Report 6433578-7 (Version None)
Quarter: 2009Q4

REPORT INFORMATION
  Report Type: 
  Country: None (occurrence: None)
  Receive Date: 20091106
  Receipt Date: 20091106
  Transmission Date: 20100525
  Serious: No
  Sender: FDA-Public Use
  Company Number: None

PATIENT
  Sex: Male
  Weight: 90.7194 kg

DRUGS (2)
  1. LEVAQUIN [Suspect]
     Indication: NASOPHARYNGITIS
     Dosage: 750MG 1X DAY 5 DAYS
     Dates: start: 20090128
  2. LEVAQUIN [Suspect]
     Indication: NASOPHARYNGITIS
     Dosage: 750MG 1X DAY 5 DAYS
     Dates: start: 20090528

REACTIONS (2)
  - TENDON RUPTURE [None]
  - TENDONITIS [None]
